FAERS Safety Report 19207496 (Version 1)
Quarter: 2021Q2

REPORT INFORMATION
  Report Type: Report from Study
  Country: US (occurrence: US)
  Receive Date: 20210503
  Receipt Date: 20210503
  Transmission Date: 20210717
  Serious: No
  Sender: FDA-Public Use
  Company Number: NVSC2021US099415

PATIENT

DRUGS (2)
  1. ENTRESTO [Suspect]
     Active Substance: SACUBITRIL\VALSARTAN
     Indication: CHRONIC LEFT VENTRICULAR FAILURE
     Dosage: 100 MG, BID
     Route: 048
     Dates: start: 20200614
  2. ENTRESTO [Suspect]
     Active Substance: SACUBITRIL\VALSARTAN
     Indication: PSORIATIC ARTHROPATHY
     Dosage: 200 MG, BID
     Route: 048

REACTIONS (2)
  - Product prescribing error [Unknown]
  - Product use in unapproved indication [Unknown]
